FAERS Safety Report 6711942-6 (Version None)
Quarter: 2010Q2

REPORT INFORMATION
  Report Type: 
  Country: None (occurrence: None)
  Receive Date: 20100505
  Receipt Date: 20100422
  Transmission Date: 20101027
  Serious: Yes (Hospitalization)
  Sender: FDA-Public Use
  Company Number: IT-BRISTOL-MYERS SQUIBB COMPANY-15031289

PATIENT
  Age: 56 Year
  Sex: Male
  Weight: 75 kg

DRUGS (7)
  1. CETUXIMAB [Suspect]
     Indication: NON-SMALL CELL LUNG CANCER
     Dosage: DAY 1 CYCLE 1;250MG/M2 WEEKLY
     Route: 042
     Dates: start: 20100304
  2. CISPLATIN [Suspect]
     Indication: NON-SMALL CELL LUNG CANCER
     Route: 042
     Dates: start: 20100304
  3. ALIMTA [Suspect]
     Indication: NON-SMALL CELL LUNG CANCER
     Dosage: VIAL
     Route: 042
     Dates: start: 20100304
  4. FOLIC ACID [Concomitant]
     Dates: start: 20100225
  5. VITAMIN B-12 [Concomitant]
     Dates: start: 20100225
  6. DEXAMETHASONE [Concomitant]
     Dates: start: 20100225
  7. ANTIHISTAMINE NOS [Concomitant]
     Dates: start: 20100225

REACTIONS (1)
  - HEMIPARESIS [None]
